FAERS Safety Report 4543469-4 (Version None)
Quarter: 2005Q1

REPORT INFORMATION
  Report Type: 
  Country: None (occurrence: None)
  Receive Date: 20050103
  Receipt Date: 20041125
  Transmission Date: 20050727
  Serious: Yes (Other)
  Sender: FDA-Public Use
  Company Number: JP-MERCK-0411USA04072

PATIENT
  Age: 4 Year
  Sex: Male
  Weight: 17 kg

DRUGS (3)
  1. COSMEGEN [Suspect]
     Indication: RHABDOMYOSARCOMA
     Route: 042
  2. ONCOVIN [Suspect]
     Indication: RHABDOMYOSARCOMA
     Route: 042
  3. ENDOXAN [Suspect]
     Indication: RHABDOMYOSARCOMA
     Route: 042

REACTIONS (4)
  - ASCITES [None]
  - CONSTIPATION [None]
  - HEPATIC VEIN OCCLUSION [None]
  - INAPPROPRIATE ANTIDIURETIC HORMONE SECRETION [None]
